FAERS Safety Report 7383832-X (Version None)
Quarter: 2011Q1

REPORT INFORMATION
  Report Type: 
  Country: None (occurrence: None)
  Receive Date: 20110323
  Receipt Date: 20110308
  Transmission Date: 20110831
  Serious: Yes (Other)
  Sender: FDA-Public Use
  Company Number: 2011SP011008

PATIENT
  Sex: Female

DRUGS (1)
  1. NUVARING [Suspect]
     Indication: CONTRACEPTION
     Dosage: QM; VAG
     Route: 067

REACTIONS (5)
  - BLOOD IRON DECREASED [None]
  - THYROXINE INCREASED [None]
  - WHITE BLOOD CELL COUNT INCREASED [None]
  - TRI-IODOTHYRONINE INCREASED [None]
  - HYPOMENORRHOEA [None]
